FAERS Safety Report 10164336 (Version 2)
Quarter: 2014Q2

REPORT INFORMATION
  Report Type: Spontaneous
  Country: US (occurrence: US)
  Receive Date: 20140510
  Receipt Date: 20140510
  Transmission Date: 20141212
  Serious: No
  Sender: FDA-Public Use
  Company Number: US-BRISTOL-MYERS SQUIBB COMPANY-20057998

PATIENT
  Age: 68 Year
  Sex: Male
  Weight: 80.72 kg

DRUGS (1)
  1. BYDUREON [Suspect]
     Indication: TYPE 2 DIABETES MELLITUS
     Dosage: 12-DEC-2013 TO 19-DEC-2013; 20-DEC-2013 TO 02-JAN-2014;
     Route: 058
     Dates: start: 20131212, end: 20140102

REACTIONS (4)
  - Injection site pain [Recovering/Resolving]
  - Injection site pruritus [Recovering/Resolving]
  - Injection site swelling [Recovering/Resolving]
  - Injection site nodule [Recovering/Resolving]
